FAERS Safety Report 6785984-9 (Version None)
Quarter: 2010Q2

REPORT INFORMATION
  Report Type: 
  Country: None (occurrence: None)
  Receive Date: 20100623
  Receipt Date: 20100428
  Transmission Date: 20101027
  Serious: Yes (Hospitalization, Disabling)
  Sender: FDA-Public Use
  Company Number: FR-SANOFI-AVENTIS-2010SA024717

PATIENT
  Age: 89 Year
  Sex: Female
  Weight: 52 kg

DRUGS (5)
  1. PLAVIX [Suspect]
     Route: 048
     Dates: end: 20081107
  2. LOVENOX [Interacting]
     Indication: THROMBOSIS
     Route: 058
     Dates: start: 20081104, end: 20081101
  3. LOVENOX [Interacting]
     Route: 058
     Dates: start: 20081101, end: 20081109
  4. KEPPRA [Interacting]
     Indication: DRUG USE FOR UNKNOWN INDICATION
     Route: 048
  5. ACEBUTOLOL [Concomitant]
     Indication: DRUG USE FOR UNKNOWN INDICATION
     Route: 048

REACTIONS (8)
  - BLISTER [None]
  - COMPARTMENT SYNDROME [None]
  - DRUG INTERACTION [None]
  - HAEMATOMA [None]
  - HYPOTENSION [None]
  - OVERDOSE [None]
  - PAIN IN EXTREMITY [None]
  - PALLOR [None]
